FAERS Safety Report 11972060 (Version 9)
Quarter: 2016Q3

REPORT INFORMATION
  Report Type: Report from Study
  Country: LB (occurrence: LB)
  Receive Date: 20160128
  Receipt Date: 20160906
  Transmission Date: 20161109
  Serious: Yes (Other)
  Sender: FDA-Public Use
  Company Number: PHHY2016LB008493

PATIENT
  Age: 36 Year
  Sex: Female

DRUGS (5)
  1. EUTHYROX [Concomitant]
     Active Substance: LEVOTHYROXINE SODIUM
     Dosage: 150 UG, QD
     Route: 048
     Dates: start: 20160118
  2. TASIGNA [Suspect]
     Active Substance: NILOTINIB
     Indication: CHRONIC MYELOID LEUKAEMIA
     Dosage: 600 MG, QD
     Route: 048
     Dates: start: 20160113
  3. ZYLORIC [Concomitant]
     Active Substance: ALLOPURINOL
     Indication: PRODUCT USED FOR UNKNOWN INDICATION
     Dosage: 300 MG, FOR 10 DAYS PER MONTH
     Route: 048
  4. EUTHYROX [Concomitant]
     Active Substance: LEVOTHYROXINE SODIUM
     Indication: PRODUCT USED FOR UNKNOWN INDICATION
     Dosage: 100 UG, QD
     Route: 048
     Dates: start: 2007
  5. EURO D [Concomitant]
     Indication: PRODUCT USED FOR UNKNOWN INDICATION
     Dosage: 1 DF, EVERY 3 DAYS
     Route: 048

REACTIONS (27)
  - Nervousness [Not Recovered/Not Resolved]
  - Vaginal infection [Unknown]
  - Anaemia [Recovering/Resolving]
  - Abdominal pain upper [Unknown]
  - Dizziness [Not Recovered/Not Resolved]
  - Abdominal distension [Not Recovered/Not Resolved]
  - Oropharyngeal pain [Not Recovered/Not Resolved]
  - Ovarian cyst [Unknown]
  - Oedema peripheral [Not Recovered/Not Resolved]
  - Thyroid disorder [Not Recovered/Not Resolved]
  - Chest pain [Not Recovered/Not Resolved]
  - Granuloma skin [Not Recovered/Not Resolved]
  - Pelvic pain [Not Recovered/Not Resolved]
  - Abdominal pain [Not Recovered/Not Resolved]
  - Pelvic fluid collection [Unknown]
  - Anxiety [Not Recovered/Not Resolved]
  - Ear pain [Not Recovered/Not Resolved]
  - Rectal haemorrhage [Recovered/Resolved]
  - White blood cell count decreased [Recovering/Resolving]
  - Fatigue [Not Recovered/Not Resolved]
  - Back pain [Unknown]
  - Arthralgia [Recovered/Resolved]
  - Menstrual disorder [Recovered/Resolved]
  - Splenomegaly [Unknown]
  - Tooth disorder [Not Recovered/Not Resolved]
  - Burning sensation [Recovered/Resolved]
  - Bone pain [Not Recovered/Not Resolved]

NARRATIVE: CASE EVENT DATE: 20160122
